FAERS Safety Report 8885682 (Version 1)
Quarter: 2012Q4

REPORT INFORMATION
  Report Type: 
  Country: US (occurrence: US)
  Receive Date: 20121101
  Receipt Date: 20121101
  Transmission Date: 20130627
  Serious: Yes (Other)
  Sender: FDA-Public Use
  Company Number: US-PFIZER INC-2012267476

PATIENT
  Age: 41 Year
  Sex: Female

DRUGS (1)
  1. REVATIO [Suspect]
     Indication: IDIOPATHIC PULMONARY ARTERIAL HYPERTENSION
     Dosage: 20 mg, 3x/day
     Route: 048
     Dates: end: 2012

REACTIONS (1)
  - Dyspnoea [Unknown]
